FAERS Safety Report 7888059-0 (Version None)
Quarter: 2011Q4

REPORT INFORMATION
  Report Type: 
  Country: None (occurrence: None)
  Receive Date: 20111103
  Receipt Date: 20111101
  Transmission Date: 20120403
  Serious: Yes (Hospitalization)
  Sender: FDA-Public Use
  Company Number: DE-CEPHALON-2011005230

PATIENT
  Sex: Male
  Weight: 78 kg

DRUGS (6)
  1. PREDNISONE [Concomitant]
     Dates: start: 20090601
  2. TEMSIROLIMUS [Suspect]
     Indication: NON-HODGKIN'S LYMPHOMA
     Dates: start: 20110831, end: 20111005
  3. RAMIPRIL [Concomitant]
  4. BENDAMUSTINE HCL [Suspect]
     Indication: NON-HODGKIN'S LYMPHOMA
     Route: 042
     Dates: start: 20110830, end: 20111005
  5. RITUXIMAB [Suspect]
     Indication: NON-HODGKIN'S LYMPHOMA
     Route: 042
     Dates: start: 20110829, end: 20111005
  6. BISOPROLOL [Concomitant]

REACTIONS (1)
  - PNEUMONIA PRIMARY ATYPICAL [None]
